FAERS Safety Report 20178028 (Version 1)
Quarter: 2021Q4

REPORT INFORMATION
  Report Type: Spontaneous
  Country: CN (occurrence: CN)
  Receive Date: 20211213
  Receipt Date: 20211213
  Transmission Date: 20220303
  Serious: Yes (Hospitalization, Other)
  Sender: FDA-Public Use
  Company Number: CN-SA-2021SA411581

PATIENT
  Age: 52 Year
  Sex: Female

DRUGS (2)
  1. LEFLUNOMIDE [Suspect]
     Active Substance: LEFLUNOMIDE
     Indication: Rheumatoid arthritis
  2. CELECOXIB [Concomitant]
     Active Substance: CELECOXIB
     Indication: Rheumatoid arthritis

REACTIONS (11)
  - Rheumatoid vasculitis [Recovering/Resolving]
  - Spinal subarachnoid haemorrhage [Recovering/Resolving]
  - Anaemia [Recovering/Resolving]
  - Inflammation [Recovering/Resolving]
  - Nodule [Recovering/Resolving]
  - Back pain [Recovering/Resolving]
  - Chest pain [Recovering/Resolving]
  - Muscular weakness [Recovering/Resolving]
  - Asthenia [Recovering/Resolving]
  - Abnormal faeces [Recovering/Resolving]
  - Micturition disorder [Recovering/Resolving]
